FAERS Safety Report 25434114 (Version 1)
Quarter: 2025Q2

REPORT INFORMATION
  Report Type: Spontaneous
  Country: US (occurrence: US)
  Receive Date: 20250613
  Receipt Date: 20250613
  Transmission Date: 20250716
  Serious: No
  Sender: GLAND PHARMA LTD
  Company Number: US-GLANDPHARMA-US-2025GLNSPO01369

PATIENT
  Age: 20 Year

DRUGS (2)
  1. LINCOMYCIN [Suspect]
     Active Substance: LINCOMYCIN
     Indication: Oropharyngeal pain
     Route: 065
  2. ASPIRIN [Suspect]
     Active Substance: ASPIRIN
     Indication: Oropharyngeal pain
     Route: 065

REACTIONS (2)
  - Oropharyngeal pain [Unknown]
  - Condition aggravated [Unknown]
